FAERS Safety Report 9229396 (Version 2)
Quarter: 2013Q3

REPORT INFORMATION
  Report Type: Spontaneous
  Country: US (occurrence: US)
  Receive Date: 20130412
  Receipt Date: 20130808
  Transmission Date: 20140515
  Serious: Yes (Death, Hospitalization)
  Sender: FDA-Public Use
  Company Number: US-ASTELLAS-2013US003614

PATIENT
  Age: 68 Year
  Sex: Male

DRUGS (1)
  1. PROGRAF [Suspect]
     Indication: RENAL TRANSPLANT
     Dosage: 1MG IN THE MORNING
     Route: 048
     Dates: start: 20110920, end: 20130723

REACTIONS (4)
  - Respiratory arrest [Fatal]
  - Cardiac arrest [Fatal]
  - Cardiac failure congestive [Unknown]
  - Pneumonia [Unknown]
